FAERS Safety Report 24212189 (Version 1)
Quarter: 2024Q3

REPORT INFORMATION
  Report Type: Spontaneous
  Country: US (occurrence: None)
  Receive Date: 20240815
  Receipt Date: 20240815
  Transmission Date: 20241016
  Serious: No
  Sender: ASTRAZENECA
  Company Number: 2024A165947

PATIENT

DRUGS (1)
  1. TEZSPIRE [Suspect]
     Active Substance: TEZEPELUMAB-EKKO

REACTIONS (11)
  - Injection site pain [Unknown]
  - Nasopharyngitis [Unknown]
  - Pneumonia [Unknown]
  - Snoring [Unknown]
  - Anosmia [Unknown]
  - Dyspnoea [Unknown]
  - Injection site mass [Recovered/Resolved]
  - Accidental exposure to product [Unknown]
  - Incorrect dose administered by device [Unknown]
  - Wrong technique in product usage process [Unknown]
  - Drug effect less than expected [Unknown]
